FAERS Safety Report 24440484 (Version 1)
Quarter: 2024Q4

REPORT INFORMATION
  Report Type: Spontaneous
  Country: IN (occurrence: IN)
  Receive Date: 20241016
  Receipt Date: 20241016
  Transmission Date: 20250115
  Serious: Yes (Other)
  Sender: ALKEM
  Company Number: IN-ALKEM LABORATORIES LIMITED-IN-ALKEM-2024-07663

PATIENT
  Age: 62 Year
  Sex: Female

DRUGS (1)
  1. DULOXETINE HYDROCHLORIDE [Suspect]
     Active Substance: DULOXETINE HYDROCHLORIDE
     Indication: Diabetic neuropathy
     Dosage: 30 MILLIGRAM, BID
     Route: 065

REACTIONS (2)
  - Hypertensive urgency [Recovering/Resolving]
  - Blood pressure increased [Recovering/Resolving]
